FAERS Safety Report 7250862-8 (Version None)
Quarter: 2011Q1

REPORT INFORMATION
  Report Type: 
  Country: None (occurrence: None)
  Receive Date: 20110128
  Receipt Date: 20110124
  Transmission Date: 20110831
  Serious: Yes (Congenital Anomaly)
  Sender: FDA-Public Use
  Company Number: A0743766A

PATIENT
  Sex: Female
  Weight: 2.7 kg

DRUGS (3)
  1. PRENATAL VITAMINS [Concomitant]
  2. PAXIL CR [Suspect]
     Indication: DEPRESSION
     Dosage: 25MG PER DAY
     Route: 064
  3. PAXIL [Suspect]
     Indication: DEPRESSION
     Dosage: 25MG PER DAY
     Route: 064

REACTIONS (5)
  - HEART DISEASE CONGENITAL [None]
  - LUNG DISORDER [None]
  - CARDIAC MURMUR [None]
  - PREMATURE BABY [None]
  - DRUG EXPOSURE DURING PREGNANCY [None]
